FAERS Safety Report 19405106 (Version 4)
Quarter: 2023Q1

REPORT INFORMATION
  Report Type: Spontaneous
  Country: CA (occurrence: CA)
  Receive Date: 20210611
  Receipt Date: 20230102
  Transmission Date: 20230418
  Serious: Yes (Hospitalization, Other)
  Sender: FDA-Public Use
  Company Number: CA-SAMSUNG BIOEPIS-SB-2021-14107

PATIENT
  Age: 19 Year
  Sex: Male
  Weight: 87 kg

DRUGS (2)
  1. INFLIXIMAB [Suspect]
     Active Substance: INFLIXIMAB
     Indication: Crohn^s disease
     Route: 042
  2. PREDNISONE [Concomitant]
     Active Substance: PREDNISONE
     Indication: Premedication
     Route: 048

REACTIONS (9)
  - Anal abscess [Unknown]
  - COVID-19 [Unknown]
  - Condition aggravated [Unknown]
  - Fistula [Unknown]
  - Nasopharyngitis [Unknown]
  - Sinus disorder [Unknown]
  - Sinusitis bacterial [Unknown]
  - Intentional product use issue [Unknown]
  - Off label use [Unknown]
